FAERS Safety Report 25148682 (Version 3)
Quarter: 2025Q2

REPORT INFORMATION
  Report Type: Report from Study
  Country: US (occurrence: US)
  Receive Date: 20250402
  Receipt Date: 20250507
  Transmission Date: 20250716
  Serious: No
  Sender: BIOVITRUM
  Company Number: US-BIOVITRUM-2024-US-016620

PATIENT
  Age: 55 Year
  Sex: Female

DRUGS (1)
  1. KINERET [Suspect]
     Active Substance: ANAKINRA
     Indication: Cholangiocarcinoma
     Route: 058
     Dates: start: 20241206

REACTIONS (17)
  - Somnolence [Unknown]
  - Injection site pain [Unknown]
  - Off label use [Not Recovered/Not Resolved]
  - Rash [Unknown]
  - Injection site reaction [Unknown]
  - Dyspnoea [Unknown]
  - Injection site pruritus [Unknown]
  - Nausea [Unknown]
  - Chills [Unknown]
  - Tremor [Unknown]
  - Injection site haematoma [Unknown]
  - Blood pressure increased [Unknown]
  - Body temperature abnormal [Unknown]
  - Vomiting [Unknown]
  - Feeling cold [Unknown]
  - Injection site discolouration [Unknown]
  - Drug hypersensitivity [Unknown]

NARRATIVE: CASE EVENT DATE: 20241206
